FAERS Safety Report 10206673 (Version 3)
Quarter: 2014Q4

REPORT INFORMATION
  Report Type: Spontaneous
  Country: US (occurrence: US)
  Receive Date: 20140530
  Receipt Date: 20141126
  Transmission Date: 20150528
  Serious: Yes (Hospitalization, Other)
  Sender: FDA-Public Use
  Company Number: US-B.I. PHARMACEUTICALS,INC./RIDGEFIELD-2014-BI-23049BP

PATIENT
  Sex: Female

DRUGS (4)
  1. SALBUTAMOL SULPHATE [Suspect]
     Active Substance: ALBUTEROL SULFATE
     Indication: CHRONIC OBSTRUCTIVE PULMONARY DISEASE
     Dosage: FORMULATION: INHALER
     Route: 055
  2. COUMADIN [Suspect]
     Active Substance: WARFARIN SODIUM
     Indication: PRODUCT USED FOR UNKNOWN INDICATION
     Route: 065
  3. SPIRIVA [Suspect]
     Active Substance: TIOTROPIUM BROMIDE MONOHYDRATE
     Indication: CHRONIC OBSTRUCTIVE PULMONARY DISEASE
     Route: 065
  4. PLAVIX [Suspect]
     Active Substance: CLOPIDOGREL BISULFATE
     Indication: PRODUCT USED FOR UNKNOWN INDICATION
     Route: 065

REACTIONS (17)
  - Cardiac disorder [Unknown]
  - Catheterisation cardiac [Unknown]
  - Back pain [Unknown]
  - Apnoea [Unknown]
  - Pain in extremity [Unknown]
  - Sinus operation [Unknown]
  - Arteriosclerosis [Unknown]
  - Abdominal distension [Unknown]
  - Vitamin B12 decreased [Unknown]
  - Facial pain [Unknown]
  - Chest discomfort [Unknown]
  - Infection [Unknown]
  - Transient ischaemic attack [Unknown]
  - Heart rate increased [Unknown]
  - Aneurysm [Unknown]
  - Ill-defined disorder [Unknown]
  - Adverse event [Unknown]
